FAERS Safety Report 4400873-2 (Version None)
Quarter: 2004Q3

REPORT INFORMATION
  Report Type: 
  Country: None (occurrence: None)
  Receive Date: 20040907
  Receipt Date: 20030630
  Transmission Date: 20050211
  Serious: No
  Sender: FDA-Public Use
  Company Number: US-BRISTOL-MYERS SQUIBB COMPANY-12327565

PATIENT

DRUGS (3)
  1. COUMADIN [Suspect]
  2. DILTIAZEM HCL TABS [Concomitant]
  3. LANOXIN [Concomitant]

REACTIONS (1)
  - ALOPECIA [None]
